FAERS Safety Report 13625784 (Version 1)
Quarter: 2017Q2

REPORT INFORMATION
  Report Type: Spontaneous
  Country: US (occurrence: US)
  Receive Date: 20170607
  Receipt Date: 20170607
  Transmission Date: 20170830
  Serious: Yes (Other)
  Sender: FDA-Public Use
  Company Number: US-PFIZER INC-2017245264

PATIENT
  Sex: Female
  Weight: 44 kg

DRUGS (3)
  1. IBRANCE [Suspect]
     Active Substance: PALBOCICLIB
     Indication: BREAST CANCER METASTATIC
     Dosage: 125 MG, 1X/DAY, 3 WEEKS ON AND 1 WEEK OFF
     Dates: start: 20161124, end: 201701
  2. SYNTHROID [Concomitant]
     Active Substance: LEVOTHYROXINE SODIUM
     Indication: THYROID DISORDER
     Dosage: 125 MG, 1X/DAY
  3. FASLODEX [Concomitant]
     Active Substance: FULVESTRANT
     Dosage: ONCE A MONTH INJECTIONS

REACTIONS (4)
  - Rib fracture [Unknown]
  - Pulmonary oedema [Unknown]
  - Fall [Unknown]
  - Neoplasm progression [Unknown]
